FAERS Safety Report 13267665 (Version 2)
Quarter: 2017Q2

REPORT INFORMATION
  Report Type: Spontaneous
  Country: US (occurrence: US)
  Receive Date: 20170224
  Receipt Date: 20170406
  Transmission Date: 20170830
  Serious: No
  Sender: FDA-Public Use
  Company Number: US-PFIZER INC-2017079143

PATIENT
  Sex: Female

DRUGS (2)
  1. FEMARA [Concomitant]
     Active Substance: LETROZOLE
     Dosage: UNK
  2. XELJANZ XR [Suspect]
     Active Substance: TOFACITINIB CITRATE
     Dosage: UNK

REACTIONS (9)
  - Musculoskeletal stiffness [Unknown]
  - Fatigue [Unknown]
  - Paraesthesia [Unknown]
  - Arthralgia [Unknown]
  - Neck pain [Unknown]
  - Synovitis [Unknown]
  - Myalgia [Unknown]
  - Poor quality sleep [Unknown]
  - Hot flush [Unknown]
